FAERS Safety Report 7757648-6 (Version None)
Quarter: 2011Q3

REPORT INFORMATION
  Report Type: 
  Country: None (occurrence: None)
  Receive Date: 20110916
  Receipt Date: 20110912
  Transmission Date: 20111222
  Serious: Yes (Hospitalization)
  Sender: FDA-Public Use
  Company Number: PHHO2011CA14015

PATIENT
  Sex: Female
  Weight: 11.205 kg

DRUGS (7)
  1. SODIUM CHLORIDE [Concomitant]
     Indication: ELECTROLYTE SUBSTITUTION THERAPY
  2. VITAMIN D W/VITAMIN E [Concomitant]
     Indication: VITAMIN SUPPLEMENTATION
  3. TOBRAMYCIN [Suspect]
     Indication: PSEUDOMONAS INFECTION
     Dosage: DOUBLE BLINDED
     Dates: start: 20100611
  4. BLINDED PLACEBO [Suspect]
     Indication: PSEUDOMONAS INFECTION
     Dosage: DOUBLE BLINDED
     Dates: start: 20100611
  5. CEPHALEXIN [Concomitant]
     Indication: COUGH
     Dosage: UNK
     Dates: start: 20110801
  6. TEMPRA [Concomitant]
     Indication: PYREXIA
  7. BLINDED NO TREATMENT RECEIVED [Suspect]
     Indication: PSEUDOMONAS INFECTION
     Dosage: DOUBLE BLINDED
     Dates: start: 20100611

REACTIONS (1)
  - LARYNGITIS [None]
